FAERS Safety Report 5750221-0 (Version None)
Quarter: 2008Q2

REPORT INFORMATION
  Report Type: 
  Country: None (occurrence: None)
  Receive Date: 20080527
  Receipt Date: 20080514
  Transmission Date: 20081010
  Serious: Yes (Disabling)
  Sender: FDA-Public Use
  Company Number: ES-GENENTECH-261652

PATIENT
  Age: 60 Year
  Sex: Male

DRUGS (3)
  1. MABTHERA [Suspect]
     Indication: IDIOPATHIC THROMBOCYTOPENIC PURPURA
     Dosage: UNK, UNKNOWN
     Route: 065
     Dates: start: 20080101, end: 20080101
  2. LAMIVUDINE [Suspect]
     Indication: HEPATITIS B
  3. ADEFOVIR DIPIVOXIL KIT [Suspect]
     Indication: HEPATITIS B

REACTIONS (1)
  - MYELITIS TRANSVERSE [None]
